FAERS Safety Report 10970388 (Version 1)
Quarter: 2015Q1

REPORT INFORMATION
  Report Type: Spontaneous
  Country: US (occurrence: US)
  Receive Date: 20150331
  Receipt Date: 20150331
  Transmission Date: 20150721
  Serious: No
  Sender: FDA-Public Use
  Company Number: US-009507513-1503USA013808

PATIENT
  Age: 78 Year
  Sex: Female

DRUGS (17)
  1. POTASSIUM CHLORIDE - USP [Concomitant]
     Active Substance: POTASSIUM CHLORIDE
     Dosage: UNK, TWICE DAILY
     Route: 048
  2. SYSTANE (HYPROMELLOSE 2910 (4000 MPA.S)) [Concomitant]
     Active Substance: HYPROMELLOSE 2910 (4000 MPA.S)
  3. WARFARIN [Concomitant]
     Active Substance: WARFARIN
  4. VITAMIN B12 RATIOPHARM [Concomitant]
     Dosage: 500 MG, DAILY
  5. LIDOCAINE. [Concomitant]
     Active Substance: LIDOCAINE
     Indication: ARTHRALGIA
     Dosage: UNK
     Dates: start: 20150303
  6. ATACAND [Concomitant]
     Active Substance: CANDESARTAN CILEXETIL
     Dosage: 8 MG, TWICE DAILY
     Route: 048
  7. ZOCOR [Concomitant]
     Active Substance: SIMVASTATIN
     Dosage: 20 MG, DAILY
     Route: 048
  8. CARDIZEM [Concomitant]
     Active Substance: DILTIAZEM HYDROCHLORIDE
     Dosage: 90 MG, TWICE DAILY
  9. RESTASIS [Concomitant]
     Active Substance: CYCLOSPORINE
  10. VITAMINS (UNSPECIFIED) [Concomitant]
     Active Substance: VITAMINS
  11. XANAX [Concomitant]
     Active Substance: ALPRAZOLAM
     Dosage: 0.5 MG, EVERY 8 HOURS
  12. XANTHOPHYLL [Concomitant]
     Dosage: 6 MG, DAILY
  13. CELESTONE SOLUSPAN [Suspect]
     Active Substance: BETAMETHASONE ACETATE\BETAMETHASONE SODIUM PHOSPHATE
     Indication: ARTHRALGIA
     Dosage: 2 ML, UNK
     Route: 014
     Dates: start: 20150303
  14. BUPIVACAINE HYDROCHLORIDE. [Concomitant]
     Active Substance: BUPIVACAINE HYDROCHLORIDE
     Indication: ARTHRALGIA
     Dosage: UNK
     Dates: start: 20150303
  15. OXYGEN. [Concomitant]
     Active Substance: OXYGEN
     Dosage: WEARS AT LEAST ONCE OR TWICE DAILY AND AT NIGHT WITH HER CPAP
  16. CALTRATE [Concomitant]
     Active Substance: CALCIUM CARBONATE
     Dosage: 600 MG, TWICE DAILY
  17. OMEGA-3 MARINE TRIGLYCERIDES [Concomitant]
     Active Substance: FISH OIL
     Dosage: 500 MG, TWICE DAILY

REACTIONS (6)
  - Nausea [Unknown]
  - Syncope [Unknown]
  - Loss of consciousness [Unknown]
  - Heart rate increased [Recovered/Resolved]
  - Blood pressure increased [Recovered/Resolved]
  - Dizziness [Unknown]

NARRATIVE: CASE EVENT DATE: 20150303
